FAERS Safety Report 5654519-6 (Version None)
Quarter: 2008Q1

REPORT INFORMATION
  Report Type: 
  Country: None (occurrence: None)
  Receive Date: 20080307
  Receipt Date: 20080205
  Transmission Date: 20080703
  Serious: No
  Sender: FDA-Public Use
  Company Number: CA-BAYER-200813757NA

PATIENT
  Sex: Female

DRUGS (1)
  1. CIPRO [Suspect]
     Indication: DRUG USE FOR UNKNOWN INDICATION
     Route: 048
     Dates: end: 20080101

REACTIONS (1)
  - INSOMNIA [None]
